FAERS Safety Report 21314690 (Version 1)
Quarter: 2022Q3

REPORT INFORMATION
  Report Type: Spontaneous
  Country: RU (occurrence: RU)
  Receive Date: 20220909
  Receipt Date: 20220909
  Transmission Date: 20221027
  Serious: Yes (Life-Threatening)
  Sender: FDA-Public Use
  Company Number: RU-NOVARTISPH-NVSC2021RU243119

PATIENT
  Age: 5 Year
  Sex: Female

DRUGS (1)
  1. ELTROMBOPAG OLAMINE [Suspect]
     Active Substance: ELTROMBOPAG OLAMINE
     Indication: Immune thrombocytopenia
     Dosage: 50 MG, QD
     Route: 048
     Dates: start: 201205

REACTIONS (1)
  - Cerebral venous sinus thrombosis [Recovered/Resolved]

NARRATIVE: CASE EVENT DATE: 20151227
